FAERS Safety Report 7037059-1 (Version None)
Quarter: 2010Q4

REPORT INFORMATION
  Report Type: 
  Country: None (occurrence: None)
  Receive Date: 20101011
  Receipt Date: 20100930
  Transmission Date: 20110411
  Serious: Yes (Hospitalization)
  Sender: FDA-Public Use
  Company Number: US-JNJFOC-20101000626

PATIENT
  Age: 16 Year
  Sex: Male

DRUGS (3)
  1. REMICADE [Suspect]
     Indication: COLITIS ULCERATIVE
     Route: 042
  2. MERCAPTOPURINE [Concomitant]
  3. PREDNISONE [Concomitant]

REACTIONS (3)
  - ACNE FULMINANS [None]
  - ACNE PUSTULAR [None]
  - COLECTOMY [None]
